FAERS Safety Report 8776513 (Version 3)
Quarter: 2012Q4

REPORT INFORMATION
  Report Type: 
  Country: JP (occurrence: JP)
  Receive Date: 20120910
  Receipt Date: 20120927
  Transmission Date: 20130627
  Serious: Yes (Other)
  Sender: FDA-Public Use
  Company Number: PHHY2012JP078011

PATIENT
  Age: 52 Year
  Sex: Female

DRUGS (1)
  1. AREDIA [Suspect]
     Indication: HYPERCALCAEMIA
     Dosage: 45 mg per administration, daily
     Route: 041

REACTIONS (3)
  - Tumour lysis syndrome [Unknown]
  - Fibrin degradation products increased [Unknown]
  - Blood immunoglobulin M decreased [Unknown]
